FAERS Safety Report 11844826 (Version 2)
Quarter: 2016Q1

REPORT INFORMATION
  Report Type: Spontaneous
  Country: DK (occurrence: DK)
  Receive Date: 20151217
  Receipt Date: 20160129
  Transmission Date: 20160526
  Serious: Yes (Hospitalization, Disabling, Congenital Anomaly)
  Sender: FDA-Public Use
  Company Number: DK-ASTRAZENECA-2015SF23729

PATIENT
  Age: 0 Day
  Sex: Male
  Weight: 3.6 kg

DRUGS (4)
  1. NORITREN [Suspect]
     Active Substance: NORTRIPTYLINE HYDROCHLORIDE
     Indication: DEPRESSION
     Route: 064
     Dates: start: 2015
  2. SEROQUEL [Suspect]
     Active Substance: QUETIAPINE FUMARATE
     Indication: DEPRESSION
     Route: 064
  3. PAMOL [Concomitant]
     Active Substance: ACETAMINOPHEN
     Indication: PAIN
  4. IPREN [Concomitant]
     Active Substance: IBUPROFEN
     Indication: PAIN

REACTIONS (8)
  - Hyperbilirubinaemia [Unknown]
  - Poland^s syndrome [Not Recovered/Not Resolved]
  - Brachydactyly [Not Recovered/Not Resolved]
  - Congenital musculoskeletal anomaly [Not Recovered/Not Resolved]
  - Syndactyly [Not Recovered/Not Resolved]
  - Deformity thorax [Not Recovered/Not Resolved]
  - Thrombocytopenia neonatal [Recovered/Resolved]
  - Neutropenia neonatal [Recovered/Resolved]

NARRATIVE: CASE EVENT DATE: 20151122
